FAERS Safety Report 4368844-2 (Version None)
Quarter: 2004Q2

REPORT INFORMATION
  Report Type: 
  Country: None (occurrence: None)
  Receive Date: 20040525
  Receipt Date: 20040519
  Transmission Date: 20050107
  Serious: Yes (Death)
  Sender: FDA-Public Use
  Company Number: US-JNJFOC- 20040401305

PATIENT
  Age: 18 Year
  Sex: Female
  Weight: 80.2867 kg

DRUGS (1)
  1. ORTHO EVRA [Suspect]
     Indication: CONTRACEPTION
     Dosage: 1 DOSE (S), 3 IN 4 WEEK, TRANSDERMAL
     Route: 062
     Dates: start: 20031201, end: 20040401

REACTIONS (14)
  - CIRCULATORY COLLAPSE [None]
  - CONJUNCTIVAL HAEMORRHAGE [None]
  - CONTUSION [None]
  - FALL [None]
  - HEAD INJURY [None]
  - HEADACHE [None]
  - INJURY [None]
  - MUSCLE HAEMORRHAGE [None]
  - NECK INJURY [None]
  - OEDEMA PERIPHERAL [None]
  - PAIN IN EXTREMITY [None]
  - PULMONARY EMBOLISM [None]
  - SUDDEN DEATH [None]
  - THROMBOSIS [None]
